FAERS Safety Report 7582002-X (Version None)
Quarter: 2011Q2

REPORT INFORMATION
  Report Type: 
  Country: None (occurrence: None)
  Receive Date: 20110630
  Receipt Date: 20050224
  Transmission Date: 20111010
  Serious: No
  Sender: FDA-Public Use
  Company Number: US-BIOGENIDEC-2005BI004263

PATIENT
  Age: 31 Year
  Sex: Female

DRUGS (5)
  1. PLETAL [Concomitant]
  2. ZOLOFT [Concomitant]
  3. PROVIGIL [Concomitant]
  4. TYSABRI [Suspect]
     Indication: MULTIPLE SCLEROSIS
     Route: 042
     Dates: start: 20050114, end: 20050114
  5. LOTREL [Concomitant]

REACTIONS (2)
  - URTICARIA [None]
  - RASH PRURITIC [None]
